FAERS Safety Report 4623751-2 (Version None)
Quarter: 2005Q1

REPORT INFORMATION
  Report Type: 
  Country: None (occurrence: None)
  Receive Date: 20050331
  Receipt Date: 20050308
  Transmission Date: 20050727
  Serious: Yes (Hospitalization)
  Sender: FDA-Public Use
  Company Number: 200511836US

PATIENT
  Sex: Male

DRUGS (11)
  1. TAXOTERE [Suspect]
     Indication: PROSTATE CANCER
     Route: 042
     Dates: start: 20041214, end: 20050118
  2. DOXORUBICIN HCL [Suspect]
     Indication: PROSTATE CANCER
     Route: 042
     Dates: start: 20041214, end: 20050118
  3. CALCIUM CARBONATE [Concomitant]
  4. LOPERAMIDE HCL [Concomitant]
  5. TAMSULOSIN HYDROCHLORIDE [Concomitant]
  6. ENALAPRIL [Concomitant]
  7. METOPROLOL TARTRATE [Concomitant]
  8. COMPAZINE [Concomitant]
  9. ZOLADEX [Concomitant]
  10. RANITIDINE [Concomitant]
  11. OMEPRAZOLE [Concomitant]

REACTIONS (14)
  - BLISTER [None]
  - BLOOD ALBUMIN DECREASED [None]
  - BLOOD CALCIUM DECREASED [None]
  - GENERALISED OEDEMA [None]
  - HAEMATOCRIT DECREASED [None]
  - HAEMOGLOBIN DECREASED [None]
  - HYDRONEPHROSIS [None]
  - HYDROURETER [None]
  - OEDEMA PERIPHERAL [None]
  - PLEURAL EFFUSION [None]
  - PLEURAL FIBROSIS [None]
  - PYREXIA [None]
  - RENAL FAILURE [None]
  - URETERIC OBSTRUCTION [None]
